FAERS Safety Report 21179987 (Version 2)
Quarter: 2022Q3

REPORT INFORMATION
  Report Type: Spontaneous
  Country: US (occurrence: US)
  Receive Date: 20220805
  Receipt Date: 20220811
  Transmission Date: 20221027
  Serious: No
  Sender: FDA-Public Use
  Company Number: US-Fresenius Medical Care Renal Therapies Group-FMC-2208-001116

PATIENT
  Sex: Male

DRUGS (1)
  1. DELFLEX WITH DEXTROSE 1.5% LOW MAGNESIUM LOW CALCIUM [Suspect]
     Active Substance: CALCIUM CHLORIDE\DEXTROSE\MAGNESIUM CHLORIDE\SODIUM CHLORIDE\SODIUM LACTATE
     Indication: End stage renal disease
     Dosage: 4 CYCLE WITH TFV 8,027ML
     Route: 033

REACTIONS (5)
  - Gastrointestinal disorder [Unknown]
  - Diaphragmatic disorder [Unknown]
  - Abdominal discomfort [Unknown]
  - Abdominal pain [Unknown]
  - Musculoskeletal discomfort [Not Recovered/Not Resolved]
